FAERS Safety Report 10902180 (Version 2)
Quarter: 2024Q1

REPORT INFORMATION
  Report Type: Spontaneous
  Country: US (occurrence: US)
  Receive Date: 20150310
  Receipt Date: 20240313
  Transmission Date: 20240410
  Serious: Yes (Other)
  Sender: FDA-Public Use
  Company Number: US-PFIZER INC-2015081352

PATIENT
  Age: 47 Year
  Sex: Female
  Weight: 136 kg

DRUGS (15)
  1. SOMATROPIN [Suspect]
     Active Substance: SOMATROPIN
     Indication: Hypopituitarism
     Dosage: 0.4 MG (AT THE END OF AUGUST)
  2. SOMATROPIN [Suspect]
     Active Substance: SOMATROPIN
     Dosage: 0.6 MG (AT THE END OF SEPTEMBER)
  3. SOMATROPIN [Suspect]
     Active Substance: SOMATROPIN
     Dosage: 0.4 MG (AT THE END OF OCTOBER)
  4. SOMATROPIN [Suspect]
     Active Substance: SOMATROPIN
     Dosage: 0.2 MG
     Dates: start: 2014
  5. HYDROCORTISONE [Concomitant]
     Active Substance: HYDROCORTISONE
     Indication: Adrenal insufficiency
     Dosage: 10 MG, 1X/DAY
  6. HYDROCORTISONE [Concomitant]
     Active Substance: HYDROCORTISONE
     Indication: Hypopituitarism
  7. SYNTHROID [Concomitant]
     Active Substance: LEVOTHYROXINE SODIUM
     Indication: Hypopituitarism
     Dosage: 100 UG, DAILY
  8. PREMPRO [Concomitant]
     Active Substance: ESTROGENS, CONJUGATED\MEDROXYPROGESTERONE ACETATE
     Indication: Hypopituitarism
     Dosage: UNK
  9. DDAVP [Concomitant]
     Active Substance: DESMOPRESSIN ACETATE
     Indication: Hypopituitarism
     Dosage: UNK (0.05 MG TO 0.1 MG), DAILY
  10. VALIUM [Concomitant]
     Active Substance: DIAZEPAM
     Indication: Hypopituitarism
     Dosage: 5 MG, DAILY
  11. OXYTOCIN [Concomitant]
     Active Substance: OXYTOCIN
     Indication: Hypopituitarism
     Dosage: 24 IU, 3X/DAY
  12. CABERGOLINE [Concomitant]
     Active Substance: CABERGOLINE
     Indication: Hypopituitarism
     Dosage: 0.25 MG, WEEKLY
  13. CABERGOLINE [Concomitant]
     Active Substance: CABERGOLINE
     Dosage: 0.25 MG, MONTHLY
  14. TRAMADOL [Concomitant]
     Active Substance: TRAMADOL\TRAMADOL HYDROCHLORIDE
     Indication: Hypopituitarism
     Dosage: 50 MG, 1X/DAY
  15. TRAMADOL [Concomitant]
     Active Substance: TRAMADOL\TRAMADOL HYDROCHLORIDE
     Indication: Pain

REACTIONS (9)
  - Tendonitis [Unknown]
  - Arthralgia [Unknown]
  - Hypoaesthesia [Unknown]
  - Paraesthesia [Unknown]
  - Trigger finger [Unknown]
  - Asthenia [Unknown]
  - Malaise [Unknown]
  - Pain in extremity [Unknown]
  - C-reactive protein increased [Unknown]
